FAERS Safety Report 6087662-0 (Version None)
Quarter: 2009Q1

REPORT INFORMATION
  Report Type: 
  Country: None (occurrence: None)
  Receive Date: 20090223
  Receipt Date: 20090209
  Transmission Date: 20090719
  Serious: Yes (Death, Other)
  Sender: FDA-Public Use
  Company Number: US-BRISTOL-MYERS SQUIBB COMPANY-14514343

PATIENT
  Age: 65 Year
  Sex: Male
  Weight: 95 kg

DRUGS (25)
  1. GLUCOPHAGE [Suspect]
     Indication: DIABETES MELLITUS
     Route: 048
     Dates: end: 20060611
  2. TRAZODONE HCL [Interacting]
     Indication: DEPRESSION
     Route: 048
     Dates: end: 20060611
  3. NIASPAN [Interacting]
     Indication: LOW DENSITY LIPOPROTEIN DECREASED
     Route: 048
     Dates: start: 20060611, end: 20060611
  4. NIASPAN [Interacting]
     Indication: BLOOD CHOLESTEROL INCREASED
     Route: 048
     Dates: start: 20060611, end: 20060611
  5. LORAZEPAM [Interacting]
     Indication: ANXIETY
     Route: 048
     Dates: end: 20060611
  6. GLIPIZIDE [Interacting]
     Indication: DIABETES MELLITUS
     Route: 048
     Dates: end: 20060611
  7. ATORVASTATIN CALCIUM [Interacting]
     Indication: BLOOD CHOLESTEROL
     Route: 048
  8. BUPROPION HCL [Interacting]
     Indication: DEPRESSION
     Route: 048
     Dates: end: 20060611
  9. VENLAFAXINE HCL [Interacting]
     Indication: DEPRESSION
     Route: 048
     Dates: end: 20060611
  10. TRICOR [Interacting]
     Indication: DYSLIPIDAEMIA
     Dosage: TABS
     Route: 048
     Dates: end: 20060611
  11. TENORMIN [Interacting]
     Indication: TACHYARRHYTHMIA
     Route: 048
     Dates: end: 20060611
  12. DIGOXIN [Interacting]
     Indication: TACHYARRHYTHMIA
     Route: 048
     Dates: end: 20060611
  13. LANTUS [Interacting]
     Indication: DIABETES MELLITUS
     Dosage: TAKEN 65UNITS
     Route: 058
     Dates: start: 20060609, end: 20060611
  14. MULTI-VITAMINS [Interacting]
     Route: 048
     Dates: end: 20060611
  15. RISPERDAL [Interacting]
     Indication: SLEEP DISORDER
     Dosage: TABS
     Route: 048
  16. ACTOS [Interacting]
     Indication: DIABETES MELLITUS
     Route: 048
     Dates: end: 20060611
  17. CENTRUM SILVER [Concomitant]
     Dosage: TABS
  18. THIAMINE HCL [Concomitant]
  19. PYRIDOXINE HCL [Concomitant]
  20. WELLBUTRIN [Concomitant]
  21. EFFEXOR XR [Concomitant]
  22. LANOXIN [Concomitant]
  23. GLUCOTROL [Concomitant]
  24. LIPITOR [Concomitant]
  25. CYANOCOBALAMIN [Concomitant]

REACTIONS (5)
  - CARDIO-RESPIRATORY ARREST [None]
  - DRUG INTERACTION [None]
  - FLUSHING [None]
  - MEDICATION ERROR [None]
  - MYOCARDIAL INFARCTION [None]
